FAERS Safety Report 8532742-0 (Version None)
Quarter: 2012Q3

REPORT INFORMATION
  Report Type: 
  Country: None (occurrence: None)
  Receive Date: 20120724
  Receipt Date: 20120718
  Transmission Date: 20120928
  Serious: Yes (Hospitalization, Other)
  Sender: FDA-Public Use
  Company Number: PHHY2012FR062306

PATIENT
  Sex: Male

DRUGS (24)
  1. EMEND [Suspect]
     Dosage: 125 MG, DAILY
     Route: 048
     Dates: start: 20120305
  2. METHYLPREDNISOLONE [Suspect]
     Dosage: 120 MG, UNK
     Route: 042
     Dates: start: 20120305
  3. OXYCODONE HCL [Concomitant]
     Dosage: 5 MG, AS NEEDED
  4. ZOMETA [Suspect]
     Dates: start: 20120515
  5. CISPLATIN [Suspect]
     Dosage: 75 MG/M2, UNK
     Route: 042
     Dates: start: 20120515
  6. METHYLPREDNISOLONE [Suspect]
     Dosage: 120 MG, UNK
     Route: 042
     Dates: start: 20120515
  7. FOLIC ACID [Suspect]
     Dosage: 0.4 MG, DAILY ONE WEEK
     Route: 048
     Dates: start: 20120301
  8. CISPLATIN [Suspect]
     Dosage: 75 MG/M2, UNK
     Route: 042
     Dates: start: 20120417
  9. VITAMIN B-12 [Concomitant]
     Dosage: 1000 UG, UNK
     Route: 030
  10. ALIMTA [Suspect]
     Dosage: 500 MG/M2, UNK
     Route: 042
     Dates: start: 20120515
  11. CISPLATIN [Suspect]
     Indication: LUNG ADENOCARCINOMA
     Dosage: 75 MG/M2, UNK
     Route: 042
     Dates: start: 20120305
  12. EMEND [Suspect]
     Dosage: 125 MG, DAILY
     Route: 048
     Dates: start: 20120327
  13. ALIMTA [Suspect]
     Indication: LUNG ADENOCARCINOMA
     Dosage: 500 MG/M2, UNK
     Route: 042
     Dates: start: 20120305
  14. METHYLPREDNISOLONE [Suspect]
     Dosage: 120 MG, UNK
     Route: 042
     Dates: start: 20120417
  15. ONDANSETRON [Suspect]
     Dosage: 8 MG, DAILY
     Route: 042
  16. OXYCONTIN [Suspect]
     Dosage: 90 MG, DAILY
  17. LYRICA [Suspect]
     Dosage: 100 MG, BID
     Route: 048
  18. ALIMTA [Suspect]
     Dosage: 500 MG/M2, UNK
     Route: 042
     Dates: start: 20120327
  19. ALIMTA [Suspect]
     Dosage: 500 MG/M2, UNK
     Route: 042
     Dates: start: 20120417
  20. METHYLPREDNISOLONE [Suspect]
     Dosage: 120 MG, UNK
     Route: 042
     Dates: start: 20120327
  21. DEXAMETHASONE [Suspect]
     Dosage: 4 MG, BID
     Dates: start: 20120404, end: 20120516
  22. CISPLATIN [Suspect]
     Dosage: 75 MG/M2, UNK
     Route: 042
     Dates: start: 20120327
  23. EMEND [Suspect]
     Dosage: 125 MG, DAILY
     Route: 048
     Dates: start: 20120417
  24. EMEND [Suspect]
     Dosage: 125 MG, DAILY
     Route: 048
     Dates: start: 20120515

REACTIONS (2)
  - DYSPNOEA [None]
  - HAEMOLYTIC ANAEMIA [None]
